FAERS Safety Report 10721397 (Version 1)
Quarter: 2015Q1

REPORT INFORMATION
  Report Type: Spontaneous
  Country: IT (occurrence: IT)
  Receive Date: 20150119
  Receipt Date: 20150119
  Transmission Date: 20150721
  Serious: Yes (Other)
  Sender: FDA-Public Use
  Company Number: IT-ASTRAZENECA-2015SE04144

PATIENT
  Age: 16610 Day
  Sex: Male
  Weight: 67 kg

DRUGS (1)
  1. CAPRELSA [Suspect]
     Active Substance: VANDETANIB
     Route: 048
     Dates: start: 20140409, end: 20140617

REACTIONS (4)
  - Erythema [Recovered/Resolved]
  - Melaena [Recovered/Resolved]
  - Haematemesis [Recovered/Resolved]
  - Diarrhoea [Recovered/Resolved]

NARRATIVE: CASE EVENT DATE: 20140617
